FAERS Safety Report 19841569 (Version 13)
Quarter: 2024Q3

REPORT INFORMATION
  Report Type: Spontaneous
  Country: CA (occurrence: CA)
  Receive Date: 20210916
  Receipt Date: 20240712
  Transmission Date: 20241017
  Serious: Yes (Hospitalization)
  Sender: PFIZER
  Company Number: CA-PFIZER INC-2021039750

PATIENT
  Age: 63 Year
  Sex: Female
  Weight: 83.6 kg

DRUGS (8)
  1. IBRANCE [Suspect]
     Active Substance: PALBOCICLIB
     Indication: Breast cancer metastatic
     Dosage: 125 MG, CYCLIC(DAILY FOR 21 DAYS FOLLOWED BY 7 DAYS OFF)
     Route: 048
     Dates: start: 20210130
  2. IBRANCE [Suspect]
     Active Substance: PALBOCICLIB
     Dosage: 100 MG, CYCLIC (DAILYX21 DAYS/OFF 7 DAYS)
     Route: 048
     Dates: start: 20211123
  3. IBRANCE [Suspect]
     Active Substance: PALBOCICLIB
     Dosage: 100 MG, CYCLIC (ONCE DAILY FOR 21 DAYS THEN STOP FOR 7 DAYS)
     Route: 048
  4. IBRANCE [Suspect]
     Active Substance: PALBOCICLIB
     Dosage: 100 MG, CYCLIC (FOR 21 DAYS THEN STOP 7 DAYS)
     Route: 048
  5. LETROZOLE [Concomitant]
     Active Substance: LETROZOLE
     Dosage: 2.5 MG, DAILY (90 DAYS)
     Route: 048
     Dates: start: 20211123
  6. LETROZOLE [Concomitant]
     Active Substance: LETROZOLE
     Dosage: 2.5 MG, DAILY (90 DAYS)
     Route: 048
     Dates: start: 20211222
  7. LETROZOLE [Concomitant]
     Active Substance: LETROZOLE
     Dosage: 2.5 MG PO QD TAKE ONE TABLET ONCE DAILY CONTINOUSLY
     Route: 048
  8. LETROZOLE [Concomitant]
     Active Substance: LETROZOLE
     Dosage: 2.5 MG PO QD TAKE ONE TABLET ONCE DAILY CONTINOUSLY
     Route: 048

REACTIONS (4)
  - Pulmonary thrombosis [Unknown]
  - Nausea [Unknown]
  - Weight increased [Not Recovered/Not Resolved]
  - Body surface area increased [Not Recovered/Not Resolved]

NARRATIVE: CASE EVENT DATE: 20230714
